FAERS Safety Report 10211951 (Version 5)
Quarter: 2015Q2

REPORT INFORMATION
  Report Type: Spontaneous
  Country: US (occurrence: US)
  Receive Date: 20140602
  Receipt Date: 20150422
  Transmission Date: 20150821
  Serious: Yes (Other)
  Sender: FDA-Public Use
  Company Number: US-AMGEN-USASP2014033778

PATIENT
  Age: 35 Year
  Sex: Female
  Weight: 68.03 kg

DRUGS (7)
  1. PRENATAL                           /00231801/ [Concomitant]
     Indication: PREGNANCY
     Dosage: UNK UNK, QD
     Route: 048
     Dates: start: 2013
  2. PROBIOTIC                          /06395501/ [Concomitant]
     Dosage: 30 UNK, BID
     Route: 048
     Dates: start: 2005
  3. FISH OIL [Concomitant]
     Active Substance: FISH OIL
     Dosage: 1200 MG, QD
     Route: 048
     Dates: start: 2013
  4. HUMIRA [Concomitant]
     Active Substance: ADALIMUMAB
     Indication: ANKYLOSING SPONDYLITIS
     Dosage: UNK UNK, Q2WK
     Route: 030
     Dates: start: 201412, end: 201501
  5. FISH OIL [Concomitant]
     Active Substance: FISH OIL
     Dosage: 1200 MG, QD
     Route: 048
     Dates: start: 2005
  6. ENBREL [Suspect]
     Active Substance: ETANERCEPT
     Indication: ANKYLOSING SPONDYLITIS
     Dosage: 50 MG, QWK
     Route: 065
     Dates: start: 20120427, end: 201412
  7. PROBIOTIC                          /06395501/ [Concomitant]
     Dosage: 30 UNK, QD
     Route: 048
     Dates: start: 2013

REACTIONS (6)
  - Caesarean section [Unknown]
  - Arthralgia [Not Recovered/Not Resolved]
  - Oedema peripheral [Not Recovered/Not Resolved]
  - Condition aggravated [Unknown]
  - Pregnancy [Recovered/Resolved]
  - Fatigue [Not Recovered/Not Resolved]

NARRATIVE: CASE EVENT DATE: 201312
